FAERS Safety Report 22279562 (Version 1)
Quarter: 2023Q2

REPORT INFORMATION
  Report Type: Spontaneous
  Country: US (occurrence: None)
  Receive Date: 20230502
  Receipt Date: 20230502
  Transmission Date: 20230722
  Serious: No
  Sender: FDA-Public Use
  Company Number: None

PATIENT
  Sex: Female

DRUGS (1)
  1. RINVOQ [Suspect]
     Active Substance: UPADACITINIB
     Indication: Rheumatoid arthritis
     Dosage: 15MG ONCE DAILY ORAL
     Route: 048
     Dates: start: 20210612

REACTIONS (4)
  - Arthralgia [None]
  - Therapeutic product effect decreased [None]
  - Condition aggravated [None]
  - Rheumatoid arthritis [None]
